FAERS Safety Report 6100079-5 (Version None)
Quarter: 2009Q1

REPORT INFORMATION
  Report Type: 
  Country: None (occurrence: None)
  Receive Date: 20090303
  Receipt Date: 20090225
  Transmission Date: 20090719
  Serious: Yes (Other)
  Sender: FDA-Public Use
  Company Number: B0562206A

PATIENT
  Age: 41 Year
  Sex: Male

DRUGS (6)
  1. LAMIVUDINE [Suspect]
     Indication: ANTIVIRAL TREATMENT
     Route: 048
  2. PYRIDOXINE [Concomitant]
     Route: 065
  3. CO TRIMOXAZOLE [Concomitant]
     Route: 065
  4. RIFAMPICIN [Concomitant]
     Route: 065
  5. EFAVIRENZ [Concomitant]
     Route: 065
  6. ISONIAZID [Concomitant]
     Route: 065

REACTIONS (1)
  - ANAEMIA [None]
